APPROVED DRUG PRODUCT: HEMSOL-HC
Active Ingredient: HYDROCORTISONE ACETATE
Strength: 1%
Dosage Form/Route: CREAM;TOPICAL
Application: A081274 | Product #001
Applicant: ABLE LABORATORIES INC
Approved: Jun 19, 1992 | RLD: No | RS: No | Type: DISCN